FAERS Safety Report 7408259-3 (Version None)
Quarter: 2011Q2

REPORT INFORMATION
  Report Type: 
  Country: None (occurrence: None)
  Receive Date: 20110412
  Receipt Date: 20110314
  Transmission Date: 20111010
  Serious: Yes (Other)
  Sender: FDA-Public Use
  Company Number: US-BAYER-201034756NA

PATIENT
  Age: 17 Year
  Sex: Female

DRUGS (4)
  1. YASMIN [Suspect]
     Indication: ORAL CONTRACEPTION
     Dates: start: 20070101, end: 20081201
  2. LEXAPRO [Concomitant]
     Dosage: 20 MG, UNK
  3. YAZ [Suspect]
     Indication: ORAL CONTRACEPTION
     Dates: start: 20070101, end: 20081201
  4. SEROQUEL [Concomitant]

REACTIONS (2)
  - CHOLECYSTITIS [None]
  - GALLBLADDER DISORDER [None]
